FAERS Safety Report 4325919-1 (Version None)
Quarter: 2004Q1

REPORT INFORMATION
  Report Type: 
  Country: None (occurrence: None)
  Receive Date: 20040323
  Receipt Date: 20040301
  Transmission Date: 20041129
  Serious: Yes (Hospitalization)
  Sender: FDA-Public Use
  Company Number: 20040200197

PATIENT
  Age: 16 Year
  Sex: Female

DRUGS (3)
  1. PROMETHAZINE [Suspect]
     Indication: COUGH
  2. PROMETHAZINE [Suspect]
     Indication: COUGH
  3. AZITHROMYCIN [Concomitant]

REACTIONS (7)
  - ABNORMAL BEHAVIOUR [None]
  - ANXIETY [None]
  - CONFUSIONAL STATE [None]
  - HALLUCINATIONS, MIXED [None]
  - INFLUENZA [None]
  - PARANOIA [None]
  - PSYCHOTIC DISORDER [None]
